FAERS Safety Report 6532254-X (Version None)
Quarter: 2010Q1

REPORT INFORMATION
  Report Type: 
  Country: None (occurrence: None)
  Receive Date: 20100108
  Receipt Date: 20091231
  Transmission Date: 20100710
  Serious: Yes (Life-Threatening, Hospitalization, Other)
  Sender: FDA-Public Use
  Company Number: PHHY2009FR59736

PATIENT
  Age: 57 Year
  Sex: Male

DRUGS (3)
  1. STALEVO 100 [Suspect]
     Indication: PARKINSON'S DISEASE
     Dosage: 200/50/12.5 MG/ TID
     Dates: start: 20090701
  2. STALEVO 100 [Suspect]
     Dosage: 75 MG, UNK
     Dates: start: 20091106
  3. SIFROL [Concomitant]
     Indication: PARKINSON'S DISEASE
     Dosage: UNK
     Dates: start: 20070101, end: 20090801

REACTIONS (8)
  - APATHY [None]
  - DELIRIUM [None]
  - DEPRESSION [None]
  - HALLUCINATION, VISUAL [None]
  - MALAISE [None]
  - PSYCHIATRIC DECOMPENSATION [None]
  - SUICIDE ATTEMPT [None]
  - WOUND [None]
